FAERS Safety Report 5888372-2 (Version None)
Quarter: 2008Q3

REPORT INFORMATION
  Report Type: 
  Country: None (occurrence: None)
  Receive Date: 20080918
  Receipt Date: 20080909
  Transmission Date: 20090109
  Serious: Yes (Death)
  Sender: FDA-Public Use
  Company Number: JP-WYE-H03036708

PATIENT
  Sex: Male

DRUGS (5)
  1. ANCARON [Suspect]
     Indication: VENTRICULAR FIBRILLATION
     Route: 048
     Dates: start: 20080208, end: 20080218
  2. ANCARON [Suspect]
     Indication: VENTRICULAR TACHYCARDIA
  3. ASPIRIN [Concomitant]
     Indication: MYOCARDIAL INFARCTION
     Route: 048
     Dates: end: 20080221
  4. WARFARIN SODIUM [Concomitant]
     Indication: VENTRICULAR FIBRILLATION
     Dosage: 1-3 MG
     Route: 048
     Dates: start: 20080213, end: 20080219
  5. HERBESSOR R [Concomitant]
     Indication: MYOCARDIAL INFARCTION
     Route: 048
     Dates: end: 20080219

REACTIONS (3)
  - ACUTE RESPIRATORY DISTRESS SYNDROME [None]
  - INTERSTITIAL LUNG DISEASE [None]
  - RESPIRATORY FAILURE [None]
